FAERS Safety Report 9303035 (Version 1)
Quarter: 2013Q2

REPORT INFORMATION
  Report Type: Spontaneous
  Country: BR (occurrence: BR)
  Receive Date: 20130522
  Receipt Date: 20130522
  Transmission Date: 20140414
  Serious: Yes (Hospitalization)
  Sender: FDA-Public Use
  Company Number: BR-PFIZER INC-2013154177

PATIENT
  Age: 45 Year
  Sex: Male
  Weight: 71 kg

DRUGS (1)
  1. CELEBRA [Suspect]
     Indication: SPINAL COLUMN INJURY
     Dosage: 200 MG, 1X/DAY
     Route: 048
     Dates: start: 20120517, end: 201207

REACTIONS (2)
  - Spinal disorder [Unknown]
  - Off label use [Unknown]
